FAERS Safety Report 22114796 (Version 1)
Quarter: 2023Q1

REPORT INFORMATION
  Report Type: Spontaneous
  Country: US (occurrence: None)
  Receive Date: 20230317
  Receipt Date: 20230317
  Transmission Date: 20230418
  Serious: No
  Sender: FDA-Public Use
  Company Number: None

PATIENT
  Age: 74 Year
  Sex: Female

DRUGS (2)
  1. LENALIDOMIDE [Suspect]
     Active Substance: LENALIDOMIDE
     Indication: Plasma cell myeloma
     Dosage: FREQUENCY : DAILY;?
     Route: 048
     Dates: start: 20190212
  2. REVLIMID [Suspect]
     Active Substance: LENALIDOMIDE

REACTIONS (4)
  - Nausea [None]
  - Peripheral swelling [None]
  - Dizziness [None]
  - Product substitution issue [None]

NARRATIVE: CASE EVENT DATE: 20230316
